FAERS Safety Report 12505524 (Version 1)
Quarter: 2016Q2

REPORT INFORMATION
  Report Type: Spontaneous
  Country: DE (occurrence: DE)
  Receive Date: 20160628
  Receipt Date: 20160628
  Transmission Date: 20160815
  Serious: Yes (Other)
  Sender: FDA-Public Use
  Company Number: DE-INCYTE CORPORATION-2016IN003752

PATIENT
  Sex: Male

DRUGS (1)
  1. JAKAFI [Suspect]
     Active Substance: RUXOLITINIB
     Indication: POLYCYTHAEMIA VERA
     Dosage: 20 MG, QD
     Route: 065

REACTIONS (4)
  - Platelet count increased [Unknown]
  - Metastases to liver [Unknown]
  - Rectal cancer [Unknown]
  - Second primary malignancy [Unknown]

NARRATIVE: CASE EVENT DATE: 201605
